FAERS Safety Report 24264607 (Version 1)
Quarter: 2024Q3

REPORT INFORMATION
  Report Type: Spontaneous
  Country: US (occurrence: None)
  Receive Date: 20240828
  Receipt Date: 20240828
  Transmission Date: 20241017
  Serious: Yes (unspecified)
  Sender: Public
  Company Number: None

PATIENT
  Age: 60 Year
  Sex: Female

DRUGS (1)
  1. VUMERITY [Suspect]
     Active Substance: DIROXIMEL FUMARATE
     Indication: Multiple sclerosis
     Dosage: FREQUENCY : TWICE A DAY;?

REACTIONS (8)
  - Product use issue [None]
  - Inappropriate schedule of product administration [None]
  - Skin burning sensation [None]
  - Erythema [None]
  - Dizziness [None]
  - Asthenia [None]
  - Feeling cold [None]
  - Therapy interrupted [None]
